FAERS Safety Report 7358213-5 (Version None)
Quarter: 2011Q1

REPORT INFORMATION
  Report Type: 
  Country: None (occurrence: None)
  Receive Date: 20110307
  Receipt Date: 20100609
  Transmission Date: 20110831
  Serious: No
  Sender: FDA-Public Use
  Company Number: AEUSA201000212

PATIENT
  Age: 50 Year
  Sex: Female
  Weight: 90 kg

DRUGS (2)
  1. NORMAL SALINE [Suspect]
     Indication: INTRAVENOUS CATHETER MANAGEMENT
     Dosage: 10 ML;TOTAL;IV
     Route: 042
     Dates: start: 20100609
  2. PROLASTIN-C [Suspect]
     Indication: ALPHA-1 ANTI-TRYPSIN DEFICIENCY
     Dosage: 60 MG/KG;QW;IV
     Route: 042
     Dates: start: 20100501

REACTIONS (5)
  - MALAISE [None]
  - CHEST DISCOMFORT [None]
  - FEELING ABNORMAL [None]
  - NAUSEA [None]
  - FATIGUE [None]
